FAERS Safety Report 15424744 (Version 3)
Quarter: 2018Q4

REPORT INFORMATION
  Report Type: Spontaneous
  Country: RO (occurrence: RO)
  Receive Date: 20180925
  Receipt Date: 20181219
  Transmission Date: 20190204
  Serious: Yes (Hospitalization, Other)
  Sender: FDA-Public Use
  Company Number: RO-MYLANLABS-2018M1069491

PATIENT
  Age: 4 Year
  Sex: Female

DRUGS (6)
  1. MEROPENEM. [Concomitant]
     Active Substance: MEROPENEM
     Indication: PNEUMONIA
     Dosage: 120 MILLIGRAM PER KILOGRAM, Q8H
     Route: 042
  2. VANCOMYCIN [Concomitant]
     Active Substance: VANCOMYCIN
     Indication: PNEUMONIA
     Dosage: UNK, IV NOS
     Route: 051
  3. FLUCONAZOLE. [Concomitant]
     Active Substance: FLUCONAZOLE
     Indication: PNEUMONIA
     Dosage: UNK
     Route: 065
  4. CLINDAMYCIN. [Suspect]
     Active Substance: CLINDAMYCIN
     Indication: PNEUMONIA BACTERIAL
     Dosage: UNK
     Route: 065
  5. CLINDAMYCIN. [Suspect]
     Active Substance: CLINDAMYCIN
     Indication: PNEUMONIA
  6. CLARITHROMYCIN. [Concomitant]
     Active Substance: CLARITHROMYCIN
     Indication: ANTIBIOTIC THERAPY
     Dosage: 15 MILLIGRAM PER KILOGRAM, QD
     Route: 048

REACTIONS (9)
  - Respiratory distress [Recovered/Resolved]
  - Lung cyst [Recovered/Resolved]
  - Atelectasis [Recovered/Resolved]
  - Lung abscess [Recovered/Resolved]
  - Disease progression [Recovered/Resolved]
  - Drug ineffective [Unknown]
  - Pneumonia necrotising [Recovered/Resolved]
  - Pneumonia bacterial [Recovered/Resolved]
  - Mediastinal shift [Recovered/Resolved]
